FAERS Safety Report 14407473 (Version 1)
Quarter: 2018Q1

REPORT INFORMATION
  Report Type: Spontaneous
  Country: HU (occurrence: HU)
  Receive Date: 20180118
  Receipt Date: 20180118
  Transmission Date: 20180509
  Serious: Yes (Other)
  Sender: FDA-Public Use
  Company Number: HU-ROCHE-2050817

PATIENT
  Age: 35 Year
  Sex: Female
  Weight: 67 kg

DRUGS (3)
  1. ASPIRIN PROTECT [Concomitant]
     Active Substance: ASPIRIN
  2. PEGASYS [Suspect]
     Active Substance: PEGINTERFERON ALFA-2A
     Indication: PRIMARY MYELOFIBROSIS
     Route: 065
     Dates: start: 20170425
  3. PROGESTERON [Concomitant]
     Active Substance: PROGESTERONE

REACTIONS (12)
  - Blood follicle stimulating hormone increased [Unknown]
  - Asthenia [Recovered/Resolved]
  - Injection site reaction [Unknown]
  - Off label use [Unknown]
  - Maternal exposure during pregnancy [Unknown]
  - Leukopenia [Unknown]
  - Foetal death [Unknown]
  - Somnolence [Recovered/Resolved]
  - Alopecia [Unknown]
  - Abortion spontaneous [Unknown]
  - Intentional product use issue [Unknown]
  - Abdominal pain upper [Unknown]

NARRATIVE: CASE EVENT DATE: 20170619
